FAERS Safety Report 4576708-4 (Version None)
Quarter: 2005Q1

REPORT INFORMATION
  Report Type: 
  Country: None (occurrence: None)
  Receive Date: 20050207
  Receipt Date: 20050131
  Transmission Date: 20050727
  Serious: Yes (Hospitalization)
  Sender: FDA-Public Use
  Company Number: 39K/05/AE

PATIENT
  Age: 87 Year
  Sex: Female
  Weight: 56.6996 kg

DRUGS (6)
  1. KRISTALOSE (LACTULOSE) FOR ORAL SOLUTION [Suspect]
     Indication: CONSTIPATION
     Dosage: 20 GRAM PRN, PO
     Route: 048
     Dates: start: 20040707, end: 20050101
  2. LORAZEPAM [Concomitant]
  3. ZYPREXA [Concomitant]
  4. MIACALCIN [Concomitant]
  5. DETROL [Concomitant]
  6. NEXIUM [Concomitant]

REACTIONS (2)
  - ABDOMINAL PAIN [None]
  - VOMITING [None]
